FAERS Safety Report 11697712 (Version 1)
Quarter: 2015Q4

REPORT INFORMATION
  Report Type: Spontaneous
  Country: US (occurrence: US)
  Receive Date: 20151104
  Receipt Date: 20151104
  Transmission Date: 20160304
  Serious: No
  Sender: FDA-Public Use
  Company Number: US-ELI_LILLY_AND_COMPANY-US201012000292

PATIENT
  Sex: Female

DRUGS (2)
  1. FORTEO [Suspect]
     Active Substance: TERIPARATIDE
     Dosage: 20 UG, DAILY (1/D)
     Route: 058
     Dates: start: 20100316
  2. FORTEO [Suspect]
     Active Substance: TERIPARATIDE
     Dosage: 20 UG, 5/W
     Route: 058

REACTIONS (6)
  - Dizziness [Recovered/Resolved]
  - Chronic obstructive pulmonary disease [Unknown]
  - Vision blurred [Recovered/Resolved]
  - Fatigue [Recovered/Resolved]
  - Inappropriate schedule of drug administration [Recovered/Resolved]
  - Rhinorrhoea [Recovered/Resolved]
